FAERS Safety Report 6072214-9 (Version None)
Quarter: 2009Q1

REPORT INFORMATION
  Report Type: 
  Country: None (occurrence: None)
  Receive Date: 20090206
  Receipt Date: 20090206
  Transmission Date: 20090719
  Serious: Yes (Other)
  Sender: FDA-Public Use
  Company Number: None

PATIENT
  Age: 36 Year
  Sex: Female
  Weight: 87.9978 kg

DRUGS (1)
  1. GADOLINIUM [Suspect]
     Indication: COMPUTERISED TOMOGRAM
     Dosage: IV ONE TIEM DOSE FOR MRI
     Route: 042
     Dates: start: 20090205, end: 20090205

REACTIONS (4)
  - ARTHRALGIA [None]
  - MUSCULOSKELETAL STIFFNESS [None]
  - PALLOR [None]
  - SWELLING [None]
